FAERS Safety Report 14530606 (Version 1)
Quarter: 2018Q1

REPORT INFORMATION
  Report Type: Spontaneous
  Country: JP (occurrence: JP)
  Receive Date: 20180214
  Receipt Date: 20180214
  Transmission Date: 20180509
  Serious: Yes (Death)
  Sender: FDA-Public Use
  Company Number: PHJP2018JP003100

PATIENT
  Age: 68 Year
  Sex: Female

DRUGS (1)
  1. GLIVEC [Suspect]
     Active Substance: IMATINIB MESYLATE
     Indication: CHRONIC MYELOID LEUKAEMIA TRANSFORMATION
     Dosage: 600 MG, UNK
     Route: 048
     Dates: start: 201006, end: 201006

REACTIONS (2)
  - Condition aggravated [Fatal]
  - Nausea [Unknown]

NARRATIVE: CASE EVENT DATE: 201006
